FAERS Safety Report 5836682-7 (Version None)
Quarter: 2008Q3

REPORT INFORMATION
  Report Type: 
  Country: None (occurrence: None)
  Receive Date: 20080807
  Receipt Date: 20080801
  Transmission Date: 20090109
  Serious: Yes (Other)
  Sender: FDA-Public Use
  Company Number: US-ROCHE-579067

PATIENT
  Age: 74 Year
  Sex: Female

DRUGS (6)
  1. IBANDRONIC ACID [Suspect]
     Indication: OSTEOPENIA
     Route: 065
     Dates: start: 20050701
  2. NEURONTIN [Concomitant]
  3. METHADONE HCL [Concomitant]
  4. LYRICA [Concomitant]
  5. ATENOLOL [Concomitant]
  6. LOPID [Concomitant]

REACTIONS (1)
  - BREAST CANCER [None]
